FAERS Safety Report 21424331 (Version 3)
Quarter: 2022Q4

REPORT INFORMATION
  Report Type: Spontaneous
  Country: HR (occurrence: HR)
  Receive Date: 20221007
  Receipt Date: 20221110
  Transmission Date: 20230113
  Serious: Yes (Hospitalization, Other)
  Sender: FDA-Public Use
  Company Number: HR-BAYER-2022A138803

PATIENT
  Age: 82 Year
  Sex: Female

DRUGS (4)
  1. RIVAROXABAN [Suspect]
     Active Substance: RIVAROXABAN
     Indication: Atrial fibrillation
     Dosage: UNK,?XARELTO 20 MG
     Route: 048
  2. RIVAROXABAN [Suspect]
     Active Substance: RIVAROXABAN
     Dosage: UNK,?XARELTO 15 MG
     Route: 048
  3. RIVAROXABAN [Suspect]
     Active Substance: RIVAROXABAN
     Dosage: UNK,?XARELTO 10 MG
     Route: 048
  4. ESOMEPRAZOLE MAGNESIUM [Concomitant]
     Active Substance: ESOMEPRAZOLE MAGNESIUM
     Dosage: 40 UNK

REACTIONS (9)
  - Mucosal haemorrhage [Unknown]
  - Gastric disorder [Unknown]
  - Haemoglobin decreased [Recovered/Resolved]
  - Cardiac failure chronic [Unknown]
  - Iron deficiency anaemia [Unknown]
  - Mouth haemorrhage [Unknown]
  - Oedema peripheral [Unknown]
  - Dyspnoea [Unknown]
  - Osteoarthritis [Unknown]

NARRATIVE: CASE EVENT DATE: 20210101
